FAERS Safety Report 12153952 (Version 1)
Quarter: 2016Q1

REPORT INFORMATION
  Report Type: Spontaneous
  Country: US (occurrence: None)
  Receive Date: 20160304
  Receipt Date: 20160304
  Transmission Date: 20160526
  Serious: Yes (Disabling)
  Sender: FDA-Public Use
  Company Number: None

PATIENT
  Age: 6 Year
  Sex: Male
  Weight: 24.95 kg

DRUGS (2)
  1. MIRALAX [Suspect]
     Active Substance: POLYETHYLENE GLYCOL 3350
     Indication: CONSTIPATION
     Dosage: FROM AGE 2.5-4 AND 1 WEEK AT 6.5 HALF A CAPFUL ONCE DAILY TAKEN BY MOUTH
     Route: 048
  2. WHOLE FOODS 365 KID^S GUMMY MULTI-VITAMIN [Concomitant]

REACTIONS (5)
  - Tic [None]
  - Autism [None]
  - Attention deficit/hyperactivity disorder [None]
  - Abnormal behaviour [None]
  - Aggression [None]

NARRATIVE: CASE EVENT DATE: 20160226
